FAERS Safety Report 4284526-X (Version None)
Quarter: 2004Q1

REPORT INFORMATION
  Report Type: 
  Country: None (occurrence: None)
  Receive Date: 20040130
  Receipt Date: 20040112
  Transmission Date: 20041129
  Serious: Yes (Hospitalization)
  Sender: FDA-Public Use
  Company Number: DSA_23863_2004

PATIENT
  Age: 35 Year
  Sex: Female

DRUGS (13)
  1. TEMESTA [Suspect]
     Dosage: 2.5 MG Q DAY PO
     Route: 048
     Dates: start: 20030327
  2. TEMESTA [Suspect]
     Dosage: 2 MG QD PO
     Route: 048
     Dates: start: 20030328
  3. SEROQUEL [Suspect]
     Indication: PSYCHOTIC DISORDER
     Dosage: 800 MG Q DAY PO
     Route: 048
     Dates: start: 20030321, end: 20030401
  4. SEROQUEL [Suspect]
     Indication: PSYCHOTIC DISORDER
     Dosage: 50 MG Q DAY PO
     Route: 048
     Dates: start: 20030304, end: 20030304
  5. SEROQUEL [Suspect]
     Indication: PSYCHOTIC DISORDER
     Dosage: 100 MG Q DAY PO
     Route: 048
     Dates: start: 20030305, end: 20030305
  6. SEROQUEL [Suspect]
     Indication: PSYCHOTIC DISORDER
     Dosage: 200 MG Q DAY PO
     Route: 048
     Dates: start: 20030306, end: 20030306
  7. SEROQUEL [Suspect]
     Indication: PSYCHOTIC DISORDER
     Dosage: 300 MG Q DAY PO
     Route: 048
     Dates: start: 20030307, end: 20030307
  8. SEROQUEL [Suspect]
     Indication: PSYCHOTIC DISORDER
     Dosage: 400 MG Q DAY PO
     Route: 048
     Dates: start: 20030308, end: 20030309
  9. SEROQUEL [Suspect]
     Indication: PSYCHOTIC DISORDER
     Dosage: 600 MG Q DAY PO
     Route: 048
     Dates: start: 20030310, end: 20030320
  10. SEROQUEL [Suspect]
     Indication: PSYCHOTIC DISORDER
     Dosage: 600 MG Q DAY PO
     Route: 048
     Dates: start: 20030402, end: 20030403
  11. SEROQUEL [Suspect]
     Indication: PSYCHOTIC DISORDER
     Dosage: 200 MG Q DAY PO
     Route: 048
     Dates: start: 20030404, end: 20030406
  12. SEROQUEL [Suspect]
     Indication: PSYCHOTIC DISORDER
     Dosage: 100 MG Q DAY PO
     Route: 048
     Dates: start: 20030407, end: 20030407
  13. TRUXAL [Suspect]
     Dosage: VAR Q DAY PO
     Route: 048
     Dates: start: 20030304, end: 20030331

REACTIONS (3)
  - ALANINE AMINOTRANSFERASE INCREASED [None]
  - ASPARTATE AMINOTRANSFERASE INCREASED [None]
  - HEPATIC ENZYME INCREASED [None]
